FAERS Safety Report 9308583 (Version 1)
Quarter: 2013Q2

REPORT INFORMATION
  Report Type: Spontaneous
  Country: US (occurrence: US)
  Receive Date: 20130524
  Receipt Date: 20130524
  Transmission Date: 20140414
  Serious: Yes (Other)
  Sender: FDA-Public Use
  Company Number: US-ELI_LILLY_AND_COMPANY-US201305006299

PATIENT
  Sex: Female
  Weight: 54.88 kg

DRUGS (1)
  1. HUMALOG LISPRO [Suspect]
     Dosage: UNK
     Route: 058

REACTIONS (5)
  - Cardiac failure congestive [Unknown]
  - Renal impairment [Unknown]
  - Blood glucose increased [Unknown]
  - Dermatitis [Unknown]
  - Weight decreased [Unknown]
